FAERS Safety Report 5215787-8 (Version None)
Quarter: 2007Q1

REPORT INFORMATION
  Report Type: 
  Country: None (occurrence: None)
  Receive Date: 20070123
  Receipt Date: 20070110
  Transmission Date: 20070707
  Serious: Yes (Congenital Anomaly, Other)
  Sender: FDA-Public Use
  Company Number: JAGER38668

PATIENT
  Sex: Female
  Weight: 1.77 kg

DRUGS (10)
  1. HALOPERIDOL DECANOAT [Suspect]
     Indication: DRUG EXPOSURE DURING PREGNANCY
     Route: 015
  2. HALDOL [Suspect]
     Indication: DRUG EXPOSURE DURING PREGNANCY
     Route: 015
  3. FLUANXOL [Suspect]
     Indication: DRUG EXPOSURE DURING PREGNANCY
     Route: 015
  4. TAVOR [Suspect]
     Indication: DRUG EXPOSURE DURING PREGNANCY
     Route: 015
  5. ATOSIL [Suspect]
     Indication: DRUG EXPOSURE DURING PREGNANCY
     Route: 015
  6. LACTULOSE [Suspect]
     Indication: DRUG EXPOSURE DURING PREGNANCY
     Route: 015
  7. DREISAFER [Suspect]
     Indication: DRUG EXPOSURE DURING PREGNANCY
     Route: 015
  8. LEPONEX [Suspect]
     Indication: DRUG EXPOSURE DURING PREGNANCY
     Route: 015
  9. MUCOSOLVAN [Suspect]
     Indication: DRUG EXPOSURE DURING PREGNANCY
     Route: 015
  10. HEPARIN [Suspect]
     Indication: UNEVALUABLE EVENT
     Route: 015

REACTIONS (2)
  - PREMATURE BABY [None]
  - SMALL FOR DATES BABY [None]
